FAERS Safety Report 8976025 (Version 1)
Quarter: 2012Q4

REPORT INFORMATION
  Report Type: 
  Country: IT (occurrence: IT)
  Receive Date: 20121219
  Receipt Date: 20121219
  Transmission Date: 20130627
  Serious: Yes (Hospitalization, Other)
  Sender: FDA-Public Use
  Company Number: PHHY2012IT116251

PATIENT
  Sex: Female

DRUGS (3)
  1. TRIAZOLAM [Suspect]
     Dosage: 10 posologic units total
     Route: 048
     Dates: end: 20121209
  2. ENALAPRIL [Suspect]
     Dosage: 14 posologic units total
     Route: 048
     Dates: end: 20121209
  3. CARBOLITHIUM [Suspect]
     Dosage: 60 posologic units total
     Route: 048
     Dates: end: 20121209

REACTIONS (6)
  - Intentional self-injury [Unknown]
  - Bradykinesia [Recovering/Resolving]
  - Bradyphrenia [Recovering/Resolving]
  - Sopor [Recovering/Resolving]
  - Antipsychotic drug level increased [Recovered/Resolved]
  - Drug abuse [Unknown]
